FAERS Safety Report 6380793-7 (Version None)
Quarter: 2009Q3

REPORT INFORMATION
  Report Type: 
  Country: None (occurrence: None)
  Receive Date: 20090929
  Receipt Date: 20090923
  Transmission Date: 20100115
  Serious: Yes (Death)
  Sender: FDA-Public Use
  Company Number: IT-CELGENEUS-083-21880-09030413

PATIENT
  Sex: Male
  Weight: 61 kg

DRUGS (1)
  1. REVLIMID [Suspect]
     Indication: MANTLE CELL LYMPHOMA
     Route: 048
     Dates: start: 20090127, end: 20090204

REACTIONS (2)
  - DISEASE PROGRESSION [None]
  - MULTI-ORGAN FAILURE [None]
